FAERS Safety Report 13009593 (Version 1)
Quarter: 2016Q4

REPORT INFORMATION
  Report Type: Spontaneous
  Country: DE (occurrence: DE)
  Receive Date: 20161208
  Receipt Date: 20161208
  Transmission Date: 20170207
  Serious: Yes (Hospitalization, Disabling, Other)
  Sender: FDA-Public Use
  Company Number: DE-JNJFOC-20161206166

PATIENT
  Age: 77 Year
  Sex: Female
  Weight: 80 kg

DRUGS (17)
  1. ZOPICLON [Concomitant]
     Active Substance: ZOPICLONE
     Route: 048
  2. PANTOPRAZOLE [Concomitant]
     Active Substance: PANTOPRAZOLE SODIUM
     Route: 065
  3. LYRICA [Concomitant]
     Active Substance: PREGABALIN
     Route: 048
  4. NOVALGIN [Concomitant]
     Active Substance: METAMIZOLE SODIUM
     Route: 065
  5. TORASEMID [Concomitant]
     Active Substance: TORSEMIDE
     Route: 048
  6. EUTHYROX [Concomitant]
     Active Substance: LEVOTHYROXINE SODIUM
     Route: 048
  7. METFORMIN [Concomitant]
     Active Substance: METFORMIN HYDROCHLORIDE
     Route: 048
  8. MCP [Concomitant]
     Active Substance: METOCLOPRAMIDE HYDROCHLORIDE
     Route: 065
  9. METOPROLOL SUCCINATE. [Concomitant]
     Active Substance: METOPROLOL SUCCINATE
     Route: 048
  10. IMODIUM [Concomitant]
     Active Substance: LOPERAMIDE HYDROCHLORIDE
     Route: 065
  11. SIMVASTATIN. [Concomitant]
     Active Substance: SIMVASTATIN
     Route: 048
  12. MIRTAZAPIN [Concomitant]
     Active Substance: MIRTAZAPINE
     Route: 065
  13. ACETORPHAN [Concomitant]
     Route: 065
  14. OXYGESIC [Concomitant]
     Active Substance: OXYCODONE
     Route: 065
  15. LAXOBERAL [Concomitant]
     Active Substance: SODIUM PICOSULFATE
     Route: 065
  16. MONO-EMBOLEX NM [Concomitant]
     Route: 065
  17. XARELTO [Suspect]
     Active Substance: RIVAROXABAN
     Indication: PULMONARY EMBOLISM
     Route: 048

REACTIONS (5)
  - Cerebral artery stenosis [Unknown]
  - Osteosarcoma [Unknown]
  - Optic nerve compression [Unknown]
  - Leukoencephalopathy [Unknown]
  - Cerebral ischaemia [Not Recovered/Not Resolved]

NARRATIVE: CASE EVENT DATE: 20161123
